FAERS Safety Report 22123016 (Version 2)
Quarter: 2023Q1

REPORT INFORMATION
  Report Type: Report from Study
  Country: GB (occurrence: GB)
  Receive Date: 20230322
  Receipt Date: 20230322
  Transmission Date: 20230417
  Serious: Yes (Other)
  Sender: FDA-Public Use
  Company Number: GB-TAKEDA-2023TUS007778

PATIENT

DRUGS (8)
  1. PREDNISOLONE [Suspect]
     Active Substance: PREDNISOLONE
     Indication: Anaplastic large cell lymphoma T- and null-cell types recurrent
     Dosage: UNK
     Route: 048
     Dates: start: 202212, end: 20230201
  2. ADCETRIS [Suspect]
     Active Substance: BRENTUXIMAB VEDOTIN
     Indication: Anaplastic large cell lymphoma T- and null-cell types recurrent
     Dosage: UNK
     Route: 042
     Dates: start: 202212, end: 20230201
  3. BRIGATINIB [Suspect]
     Active Substance: BRIGATINIB
     Indication: Anaplastic large cell lymphoma T- and null-cell types recurrent
     Dosage: 90 MG
     Route: 048
     Dates: start: 20221229
  4. BRIGATINIB [Suspect]
     Active Substance: BRIGATINIB
     Dosage: 180 MG
     Route: 048
     Dates: start: 20230104, end: 20230111
  5. BRIGATINIB [Suspect]
     Active Substance: BRIGATINIB
     Dosage: 60 MG
     Route: 048
     Dates: start: 20230118
  6. BRIGATINIB [Suspect]
     Active Substance: BRIGATINIB
     Dosage: 180 MG
     Route: 048
     Dates: start: 20230201
  7. CYCLOPHOSPHAMIDE [Suspect]
     Active Substance: CYCLOPHOSPHAMIDE
     Indication: Anaplastic large cell lymphoma T- and null-cell types recurrent
     Dosage: UNK
     Route: 042
     Dates: start: 202212, end: 20230201
  8. DOXORUBICIN [Suspect]
     Active Substance: DOXORUBICIN
     Indication: Anaplastic large cell lymphoma T- and null-cell types recurrent
     Dosage: UNK
     Route: 042
     Dates: start: 202212, end: 20230201

REACTIONS (2)
  - Anaplastic large-cell lymphoma [Not Recovered/Not Resolved]
  - Alanine aminotransferase increased [Recovered/Resolved]
